FAERS Safety Report 11899157 (Version 2)
Quarter: 2016Q1

REPORT INFORMATION
  Report Type: Spontaneous
  Country: US (occurrence: US)
  Receive Date: 20160108
  Receipt Date: 20160125
  Transmission Date: 20160526
  Serious: No
  Sender: FDA-Public Use
  Company Number: US-GLAXOSMITHKLINE-US2016000320

PATIENT
  Sex: Male

DRUGS (1)
  1. POTIGA [Suspect]
     Active Substance: EZOGABINE
     Indication: SEIZURE
     Dosage: 25 MG, TID
     Route: 048

REACTIONS (3)
  - Off label use [Unknown]
  - Product preparation error [Unknown]
  - Product use issue [Unknown]
